FAERS Safety Report 4990481-7 (Version None)
Quarter: 2006Q2

REPORT INFORMATION
  Report Type: 
  Country: None (occurrence: None)
  Receive Date: 20060427
  Receipt Date: 20060407
  Transmission Date: 20061013
  Serious: Yes (Other)
  Sender: FDA-Public Use
  Company Number: 2006054305

PATIENT
  Sex: Female

DRUGS (2)
  1. NEURONTIN [Suspect]
     Indication: ILL-DEFINED DISORDER
     Dates: start: 19940101
  2. CORTICOSTEROIDS (CORTICOSTEROIDS) [Suspect]
     Indication: ILL-DEFINED DISORDER

REACTIONS (9)
  - BREAST CANCER [None]
  - DRUG INEFFECTIVE [None]
  - DYSPNOEA [None]
  - LUNG NEOPLASM MALIGNANT [None]
  - MYASTHENIA GRAVIS [None]
  - NEUROPATHY PERIPHERAL [None]
  - PAIN IN EXTREMITY [None]
  - PARALYSIS [None]
  - WEIGHT INCREASED [None]
